FAERS Safety Report 4487799-3 (Version None)
Quarter: 2004Q4

REPORT INFORMATION
  Report Type: 
  Country: None (occurrence: None)
  Receive Date: 20041027
  Receipt Date: 20041027
  Transmission Date: 20050328
  Serious: Yes (Life-Threatening, Hospitalization)
  Sender: FDA-Public Use
  Company Number: None

PATIENT
  Age: 31 Year
  Sex: Male
  Weight: 63.5036 kg

DRUGS (1)
  1. LARIAM [Suspect]

REACTIONS (4)
  - ANXIETY [None]
  - CONVULSION [None]
  - DEPRESSION [None]
  - MENTAL DISORDER [None]
